FAERS Safety Report 5093494-2 (Version None)
Quarter: 2006Q3

REPORT INFORMATION
  Report Type: 
  Country: None (occurrence: None)
  Receive Date: 20060728
  Receipt Date: 20051219
  Transmission Date: 20061208
  Serious: Yes (Hospitalization)
  Sender: FDA-Public Use
  Company Number: D-05-077

PATIENT
  Age: 8 Month
  Sex: Female
  Weight: 7.7111 kg

DRUGS (1)
  1. CHLORPROMAZINE [Suspect]
     Dosage: 50 MG, ONE TIME, PO; SINGLE DOSE
     Route: 048

REACTIONS (2)
  - ACCIDENTAL OVERDOSE [None]
  - SOMNOLENCE [None]
